FAERS Safety Report 14580726 (Version 1)
Quarter: 2018Q1

REPORT INFORMATION
  Report Type: Spontaneous
  Country: CA (occurrence: CA)
  Receive Date: 20180228
  Receipt Date: 20180228
  Transmission Date: 20180509
  Serious: Yes (Life-Threatening, Hospitalization, Other)
  Sender: FDA-Public Use
  Company Number: CA-TEVA-2018-CA-863722

PATIENT
  Age: 67 Year
  Sex: Male
  Weight: 80 kg

DRUGS (7)
  1. ALLOPURINOL. [Interacting]
     Active Substance: ALLOPURINOL
     Indication: GOUT
  2. RABEPRAZOLE [Concomitant]
     Active Substance: RABEPRAZOLE
  3. SIMPONI [Interacting]
     Active Substance: GOLIMUMAB
     Dosage: SOLUTION SUBCUTANEOUS
  4. ASACOL [Interacting]
     Active Substance: MESALAMINE
     Indication: COLITIS
  5. TEVA-AZATHIOPRINE [Interacting]
     Active Substance: AZATHIOPRINE
     Indication: COLITIS
     Dosage: 150 MILLIGRAM DAILY;
     Route: 048
  6. AZATHIOPRINE. [Interacting]
     Active Substance: AZATHIOPRINE
     Dosage: 150 MILLIGRAM DAILY;
  7. PREDNISONE. [Suspect]
     Active Substance: PREDNISONE

REACTIONS (7)
  - Drug interaction [Recovering/Resolving]
  - Stenotrophomonas infection [Recovering/Resolving]
  - Candida infection [Recovering/Resolving]
  - Mechanical ventilation [Recovering/Resolving]
  - Pneumonia [Recovering/Resolving]
  - Respiratory failure [Recovering/Resolving]
  - Endotracheal intubation [Recovering/Resolving]
